FAERS Safety Report 13429113 (Version 1)
Quarter: 2017Q2

REPORT INFORMATION
  Report Type: Report from Study
  Country: None (occurrence: DE)
  Receive Date: 20170411
  Receipt Date: 20170411
  Transmission Date: 20170830
  Serious: Yes (Hospitalization)
  Sender: FDA-Public Use
  Company Number: DE-ABBVIE-17P-062-1936523-00

PATIENT
  Age: 72 Year
  Sex: Male

DRUGS (1)
  1. DUODOPA [Suspect]
     Active Substance: CARBIDOPA\LEVODOPA
     Indication: PARKINSON^S DISEASE
     Dosage: MD: 5ML, CRD: 3.4ML/H, ED: 1ML
     Route: 050
     Dates: start: 20160627

REACTIONS (4)
  - Drug dose omission [Unknown]
  - Cerebrovascular accident [Unknown]
  - Akinesia [Unknown]
  - Drug administration error [Unknown]

NARRATIVE: CASE EVENT DATE: 20170330
